FAERS Safety Report 17560641 (Version 1)
Quarter: 2020Q1

REPORT INFORMATION
  Report Type: Other
  Country: US (occurrence: US)
  Receive Date: 20200319
  Receipt Date: 20200319
  Transmission Date: 20200409
  Serious: Yes (Life-Threatening, Hospitalization, Other)
  Sender: FDA-Public Use
  Company Number: US-EYWA PHARMA INC.-2081777

PATIENT
  Age: 35 Year
  Sex: Male

DRUGS (3)
  1. MEROPENEM. [Concomitant]
     Active Substance: MEROPENEM
     Route: 065
  2. BACLOFEN. [Suspect]
     Active Substance: BACLOFEN
     Indication: MUSCLE SPASMS
     Route: 048
  3. VANCOMYCIN HYDROCHLORIDE. [Concomitant]
     Active Substance: VANCOMYCIN HYDROCHLORIDE
     Route: 065

REACTIONS (3)
  - Overdose [Unknown]
  - Encephalopathy [Recovered/Resolved]
  - Toxicity to various agents [Unknown]
